FAERS Safety Report 9890337 (Version 2)
Quarter: 2014Q3

REPORT INFORMATION
  Report Type: Spontaneous
  Country: IT (occurrence: IT)
  Receive Date: 20140212
  Receipt Date: 20140723
  Transmission Date: 20150326
  Serious: Yes (Other)
  Sender: FDA-Public Use
  Company Number: IT-RANBAXY-2014R1-77834

PATIENT
  Age: 33 Year
  Sex: Male

DRUGS (2)
  1. CORTISONE ACETATE. [Concomitant]
     Active Substance: CORTISONE ACETATE
     Indication: CUSHING^S SYNDROME
     Dosage: 25 MG, QD
     Route: 065
  2. TRIAMCINOLONE [Suspect]
     Active Substance: TRIAMCINOLONE
     Indication: TENOSYNOVITIS
     Dosage: UNK
     Route: 030

REACTIONS (2)
  - Cushing^s syndrome [Unknown]
  - Abscess [Unknown]
